FAERS Safety Report 21797970 (Version 1)
Quarter: 2022Q4

REPORT INFORMATION
  Report Type: Spontaneous
  Country: US (occurrence: US)
  Receive Date: 20221230
  Receipt Date: 20221230
  Transmission Date: 20230113
  Serious: No
  Sender: FDA-Public Use
  Company Number: US-BRISTOL-MYERS SQUIBB COMPANY-2022-160568

PATIENT
  Age: 52 Year
  Sex: Female

DRUGS (1)
  1. ORENCIA [Suspect]
     Active Substance: ABATACEPT
     Indication: Rheumatoid arthritis
     Dosage: DOSE OR AMOUNT AND FREQUENCY: INFUSE 500 MG INTRAVENOUSLY AT WEEK 0, 2, 4, THEN EVERY 4 WEEKS THEREA
     Route: 042
     Dates: start: 20221101

REACTIONS (1)
  - Pain [Unknown]
